FAERS Safety Report 7811233-6 (Version None)
Quarter: 2011Q4

REPORT INFORMATION
  Report Type: 
  Country: None (occurrence: None)
  Receive Date: 20111013
  Receipt Date: 20110930
  Transmission Date: 20120403
  Serious: Yes (Other)
  Sender: FDA-Public Use
  Company Number: DE-CELGENEUS-062-21660-11051440

PATIENT
  Sex: Female

DRUGS (2)
  1. ABRAXANE [Suspect]
     Dosage: 100 MILLIGRAM/SQ. METER
     Route: 065
  2. XELODA [Suspect]
     Dosage: 2000 MILLIGRAM/SQ. METER
     Route: 065

REACTIONS (1)
  - CIRCULATORY COLLAPSE [None]
